FAERS Safety Report 12963500 (Version 3)
Quarter: 2017Q1

REPORT INFORMATION
  Report Type: Report from Study
  Country: JP (occurrence: JP)
  Receive Date: 20161122
  Receipt Date: 20170330
  Transmission Date: 20170428
  Serious: Yes (Other)
  Sender: FDA-Public Use
  Company Number: JP-AMGEN-JPNNI2016164507

PATIENT
  Age: 61 Year
  Sex: Female
  Weight: 54 kg

DRUGS (18)
  1. PEGFILGRASTIM [Suspect]
     Active Substance: PEGFILGRASTIM
     Dosage: 3.6 MG, QD
     Route: 058
     Dates: start: 20160824, end: 20160824
  2. ALOXI [Concomitant]
     Active Substance: PALONOSETRON HYDROCHLORIDE
     Dosage: UNK
     Route: 042
  3. DECADRON [Concomitant]
     Active Substance: DEXAMETHASONE
     Dosage: UNK
     Route: 048
  4. PEGFILGRASTIM [Suspect]
     Active Substance: PEGFILGRASTIM
     Indication: COLONY STIMULATING FACTOR PROPHYLAXIS
     Dosage: 3.6 MG, QD
     Route: 058
     Dates: start: 20160629, end: 20160629
  5. ADRIACIN [Suspect]
     Active Substance: DOXORUBICIN HYDROCHLORIDE
     Dosage: 60 MG/M2, UNK
     Route: 041
     Dates: start: 20160627, end: 20160627
  6. ADRIACIN [Suspect]
     Active Substance: DOXORUBICIN HYDROCHLORIDE
     Dosage: 60 MG/M2, UNK
     Route: 041
     Dates: start: 20160912
  7. NITROGLYCERIN. [Concomitant]
     Active Substance: NITROGLYCERIN
     Dosage: UNK
     Route: 048
  8. ENDOXAN [Suspect]
     Active Substance: CYCLOPHOSPHAMIDE
     Dosage: 600 MG/M2, UNK
     Route: 041
     Dates: start: 20160627, end: 20160627
  9. ENDOXAN [Suspect]
     Active Substance: CYCLOPHOSPHAMIDE
     Dosage: 600 MG/M2, UNK
     Route: 041
     Dates: start: 20160822, end: 20160822
  10. DECADRON [Concomitant]
     Active Substance: DEXAMETHASONE
     Dosage: UNK
     Route: 048
  11. ENDOXAN [Suspect]
     Active Substance: CYCLOPHOSPHAMIDE
     Indication: BREAST CANCER STAGE II
     Dosage: UNK
     Route: 041
     Dates: start: 20160530, end: 20160530
  12. EMEND [Concomitant]
     Active Substance: APREPITANT
     Dosage: UNK
     Route: 048
  13. ADRIACIN [Suspect]
     Active Substance: DOXORUBICIN HYDROCHLORIDE
     Dosage: 60 MG/M2, UNK
     Route: 041
     Dates: start: 20160822, end: 20160822
  14. ADRIACIN [Suspect]
     Active Substance: DOXORUBICIN HYDROCHLORIDE
     Indication: BREAST CANCER STAGE II
     Dosage: UNK
     Route: 041
     Dates: start: 20160530
  15. CRAVIT [Concomitant]
     Active Substance: LEVOFLOXACIN
     Indication: URINARY TRACT INFECTION
     Dosage: UNK
     Route: 048
  16. PEGFILGRASTIM [Suspect]
     Active Substance: PEGFILGRASTIM
     Dosage: 3.6 MG, QD
     Route: 058
     Dates: start: 20160914, end: 20160914
  17. ENDOXAN [Suspect]
     Active Substance: CYCLOPHOSPHAMIDE
     Dosage: 600 MG/M2, UNK
     Route: 041
     Dates: start: 20160912
  18. NITROGLYCERIN. [Concomitant]
     Active Substance: NITROGLYCERIN
     Indication: ANGINA PECTORIS
     Dosage: UNK
     Route: 048

REACTIONS (6)
  - Neutrophil count decreased [Recovered/Resolved]
  - Abdominal pain [Recovered/Resolved]
  - Colony stimulating factor therapy [Unknown]
  - Febrile neutropenia [Recovering/Resolving]
  - Pulmonary artery thrombosis [Recovering/Resolving]
  - Urinary tract infection [Recovered/Resolved]

NARRATIVE: CASE EVENT DATE: 20160610
